FAERS Safety Report 12267925 (Version 3)
Quarter: 2017Q2

REPORT INFORMATION
  Report Type: Spontaneous
  Country: US (occurrence: US)
  Receive Date: 20160414
  Receipt Date: 20170407
  Transmission Date: 20170830
  Serious: Yes (Hospitalization)
  Sender: FDA-Public Use
  Company Number: US-SA-2016SA071798

PATIENT
  Age: 69 Year
  Sex: Male

DRUGS (15)
  1. AUBAGIO [Suspect]
     Active Substance: TERIFLUNOMIDE
     Indication: MULTIPLE SCLEROSIS
     Route: 048
     Dates: start: 20150417
  2. FENOFIBRATE. [Concomitant]
     Active Substance: FENOFIBRATE
  3. LACTAID [Concomitant]
     Active Substance: LACTASE
     Dosage: DOSE:3000 UNIT(S)
  4. SIMVASTATIN. [Concomitant]
     Active Substance: SIMVASTATIN
  5. KLONOPIN [Concomitant]
     Active Substance: CLONAZEPAM
  6. SELENIUM [Concomitant]
     Active Substance: SELENIUM
  7. SINEMET [Concomitant]
     Active Substance: CARBIDOPA\LEVODOPA
     Dosage: 25-250 MG
  8. COENZYME Q10 [Concomitant]
     Active Substance: UBIDECARENONE
  9. ADVAIR DISKUS [Concomitant]
     Active Substance: FLUTICASONE PROPIONATE\SALMETEROL XINAFOATE
     Dosage: 100/50
  10. METOPROLOL. [Concomitant]
     Active Substance: METOPROLOL
  11. VITAMIN D3 [Concomitant]
     Active Substance: CHOLECALCIFEROL
     Dosage: DOSE:10000 UNIT(S)
  12. NUEDEXTA [Concomitant]
     Active Substance: DEXTROMETHORPHAN HYDROBROMIDE\QUINIDINE SULFATE
     Dosage: 20-10 MG
  13. FERROUS SULFATE. [Concomitant]
     Active Substance: FERROUS SULFATE
  14. GABAPENTIN. [Concomitant]
     Active Substance: GABAPENTIN
  15. LAMOTRIGINE. [Concomitant]
     Active Substance: LAMOTRIGINE
     Dosage: CHW

REACTIONS (5)
  - Surgery [Unknown]
  - Anxiety [Not Recovered/Not Resolved]
  - Pain [Not Recovered/Not Resolved]
  - Fall [Unknown]
  - Asthenia [Not Recovered/Not Resolved]

NARRATIVE: CASE EVENT DATE: 2016
